FAERS Safety Report 24290240 (Version 6)
Quarter: 2025Q3

REPORT INFORMATION
  Report Type: Spontaneous
  Country: US (occurrence: US)
  Receive Date: 20240906
  Receipt Date: 20250813
  Transmission Date: 20251021
  Serious: Yes (Other)
  Sender: BRISTOL-MYERS SQUIBB COMPANY
  Company Number: US-BRISTOL-MYERS SQUIBB COMPANY-2024-141800

PATIENT
  Age: 65 Year
  Sex: Female

DRUGS (2)
  1. POMALYST [Suspect]
     Active Substance: POMALIDOMIDE
     Indication: Plasma cell myeloma
     Dosage: CYCLIC/DAILY
     Route: 048
  2. POMALYST [Suspect]
     Active Substance: POMALIDOMIDE
     Dosage: 2MG FOR 7 DAYS ON 7 DAYS OFF/ QD FOR 7 DAYS ON, 7 DAYS OFF
     Route: 048

REACTIONS (8)
  - White blood cell count decreased [Unknown]
  - Sinusitis [Unknown]
  - Ear pain [Unknown]
  - Nasopharyngitis [Unknown]
  - Klebsiella infection [Unknown]
  - Restless legs syndrome [Unknown]
  - Asthenia [Unknown]
  - Insomnia [Unknown]
